FAERS Safety Report 7269726-9 (Version None)
Quarter: 2011Q1

REPORT INFORMATION
  Report Type: 
  Country: None (occurrence: None)
  Receive Date: 20110124
  Receipt Date: 20110111
  Transmission Date: 20110831
  Serious: Yes (Death, Hospitalization)
  Sender: FDA-Public Use
  Company Number: 2005EU001949

PATIENT
  Age: 58 Year
  Sex: Male

DRUGS (16)
  1. TARDYFERON /SCH/ (IRON, FERROUS SULFATE) [Concomitant]
  2. LASIX [Concomitant]
  3. EPREX /UNK/ (EPOETIN ALFA) [Concomitant]
  4. CELLCEPT [Suspect]
     Indication: RENAL TRANSPLANT
     Dosage: /D
     Dates: start: 20040301, end: 20040701
  5. NEORAL [Suspect]
     Indication: RENAL TRANSPLANT
     Dosage: /D
     Dates: end: 20050301
  6. AMIKIN [Concomitant]
  7. VANCOMYCIN [Concomitant]
  8. FERROUS SULFATE TAB [Concomitant]
  9. CEFTAZIDIME [Concomitant]
  10. FUROSEMIDE [Concomitant]
  11. ARANESP [Suspect]
     Indication: RENAL FAILURE CHRONIC
     Dosage: 30.00 DF, /D
     Dates: start: 20050201, end: 20050510
  12. PROGRAF [Suspect]
     Indication: RENAL TRANSPLANT
     Dosage: 0.50 MG, UID/QD
     Dates: start: 20040301, end: 20050510
  13. FORTUM /UNK/ (CEFTAZIDIME PENTAHYDRATE) [Concomitant]
  14. ALLOPURINOL [Concomitant]
  15. ERYTHROPOETIN HUMAN (ERYTHROPOETIN HUMAN) [Concomitant]
  16. ALLOPURINOL [Concomitant]

REACTIONS (12)
  - MULTI-ORGAN FAILURE [None]
  - METABOLIC ACIDOSIS [None]
  - HEPATITIS CHOLESTATIC [None]
  - HYPERTRIGLYCERIDAEMIA [None]
  - CHOLELITHIASIS [None]
  - LYMPHOMA [None]
  - HYPOGLOBULINAEMIA [None]
  - DIARRHOEA [None]
  - ALTERED STATE OF CONSCIOUSNESS [None]
  - MICROCYTIC ANAEMIA [None]
  - HISTIOCYTOSIS HAEMATOPHAGIC [None]
  - HYPERTHERMIA [None]
